FAERS Safety Report 8180299-9 (Version None)
Quarter: 2012Q1

REPORT INFORMATION
  Report Type: 
  Country: None (occurrence: None)
  Receive Date: 20120302
  Receipt Date: 20111207
  Transmission Date: 20120608
  Serious: Yes (Death)
  Sender: FDA-Public Use
  Company Number: JP-SANOFI-AVENTIS-2011SA080719

PATIENT
  Age: 78 Year
  Sex: Female
  Weight: 72 kg

DRUGS (8)
  1. ETODOLAC [Suspect]
     Indication: ANALGESIC THERAPY
     Route: 048
     Dates: start: 20111002, end: 20111015
  2. VOLTAREN [Suspect]
     Indication: ANALGESIC THERAPY
     Route: 065
     Dates: start: 20111004, end: 20111015
  3. SENNOSIDE A+B [Concomitant]
     Route: 048
  4. DEPAS [Concomitant]
     Dosage: FORM: POR
     Route: 048
  5. AUGMENTIN '125' [Concomitant]
     Route: 048
  6. ENOXAPARIN SODIUM [Suspect]
     Route: 058
     Dates: start: 20111004, end: 20111013
  7. MUCOSTA [Concomitant]
     Dosage: FORM: POR
  8. FERROUS SULFATE TAB [Concomitant]
     Route: 048

REACTIONS (2)
  - HEPARIN-INDUCED THROMBOCYTOPENIA [None]
  - CEREBRAL HAEMORRHAGE [None]
